FAERS Safety Report 5021389-9 (Version None)
Quarter: 2006Q2

REPORT INFORMATION
  Report Type: 
  Country: None (occurrence: None)
  Receive Date: 20060605
  Receipt Date: 20060426
  Transmission Date: 20061013
  Serious: Yes (Hospitalization)
  Sender: FDA-Public Use
  Company Number: 2006058947

PATIENT
  Age: 56 Year
  Sex: Female
  Weight: 127.0072 kg

DRUGS (2)
  1. BEXTRA [Suspect]
     Indication: BACK PAIN
     Dosage: 20 MG (10 MG, 2 IN 1 D)
     Dates: start: 20020801
  2. PREDNISONE TAB [Suspect]
     Indication: ILL-DEFINED DISORDER

REACTIONS (11)
  - BLOOD GLUCOSE INCREASED [None]
  - DIABETES MELLITUS [None]
  - INFECTION [None]
  - INSOMNIA [None]
  - ORAL MUCOSAL BLISTERING [None]
  - PAIN [None]
  - SCAR [None]
  - SOMNOLENCE [None]
  - TOXIC EPIDERMAL NECROLYSIS [None]
  - VASCULITIS [None]
  - WEIGHT INCREASED [None]
